FAERS Safety Report 12556251 (Version 1)
Quarter: 2016Q3

REPORT INFORMATION
  Report Type: Spontaneous
  Country: US (occurrence: None)
  Receive Date: 20160713
  Receipt Date: 20160713
  Transmission Date: 20161109
  Serious: Yes (Disabling)
  Sender: FDA-Public Use
  Company Number: None

PATIENT
  Age: 75 Year
  Sex: Female
  Weight: 63.5 kg

DRUGS (13)
  1. SERTRALINE [Concomitant]
     Active Substance: SERTRALINE HYDROCHLORIDE
  2. LIPITOR [Concomitant]
     Active Substance: ATORVASTATIN CALCIUM
  3. PYCNOGENOL [Concomitant]
     Active Substance: DIETARY SUPPLEMENT
  4. LISINOPRIL. [Concomitant]
     Active Substance: LISINOPRIL
  5. LEVOTHYROXINE. [Concomitant]
     Active Substance: LEVOTHYROXINE
  6. KELP [Concomitant]
     Active Substance: KELP
  7. VITAMIN D3 [Concomitant]
     Active Substance: CHOLECALCIFEROL
  8. K2 [Concomitant]
     Active Substance: JWH-018
  9. LIOTHYRONINE [Concomitant]
     Active Substance: LIOTHYRONINE
  10. DHEA [Concomitant]
     Active Substance: PRASTERONE
  11. LUTEIN [Concomitant]
     Active Substance: LUTEIN
  12. MAGNESIUM [Concomitant]
     Active Substance: MAGNESIUM
  13. LATANOPROST OPHTHALMIC SOLUTION 0.005% [Suspect]
     Active Substance: LATANOPROST
     Indication: OPEN ANGLE GLAUCOMA
     Route: 047
     Dates: start: 20160129, end: 20160525

REACTIONS (6)
  - Cough [None]
  - Insomnia [None]
  - Myalgia [None]
  - Mobility decreased [None]
  - Nausea [None]
  - Arthralgia [None]

NARRATIVE: CASE EVENT DATE: 20160525
